FAERS Safety Report 23056514 (Version 1)
Quarter: 2023Q4

REPORT INFORMATION
  Report Type: Report from Study
  Country: US (occurrence: US)
  Receive Date: 20231011
  Receipt Date: 20231011
  Transmission Date: 20240109
  Serious: Yes (Death)
  Sender: FDA-Public Use
  Company Number: US-ABBVIE-5445947

PATIENT
  Sex: Male

DRUGS (1)
  1. VENCLEXTA [Suspect]
     Active Substance: VENETOCLAX
     Indication: Acute promyelocytic leukaemia
     Dosage: TIME INTERVAL: 0.16666667 DAYS
     Route: 048
     Dates: start: 202210

REACTIONS (1)
  - Death [Fatal]
